FAERS Safety Report 4668985-6 (Version None)
Quarter: 2005Q2

REPORT INFORMATION
  Report Type: 
  Country: None (occurrence: None)
  Receive Date: 20050523
  Receipt Date: 20050513
  Transmission Date: 20051028
  Serious: Yes (Hospitalization)
  Sender: FDA-Public Use
  Company Number: AT-GLAXOSMITHKLINE-B0380957A

PATIENT
  Age: 65 Year
  Sex: Female

DRUGS (4)
  1. GW679769 [Suspect]
     Dosage: 100MG PER DAY
     Route: 048
  2. DEXAMETHASONE [Suspect]
     Dosage: 8MG SINGLE DOSE
     Route: 042
  3. ONDANSETRON [Suspect]
     Dosage: 8MG TWICE PER DAY
     Route: 048
  4. DURAGESIC-100 [Suspect]
     Indication: PAIN

REACTIONS (3)
  - ABDOMINAL PAIN [None]
  - ILEUS [None]
  - VOMITING [None]
